FAERS Safety Report 9808023 (Version 2)
Quarter: 2014Q1

REPORT INFORMATION
  Report Type: Spontaneous
  Country: US (occurrence: US)
  Receive Date: 20140110
  Receipt Date: 20140120
  Transmission Date: 20141002
  Serious: Yes (Hospitalization)
  Sender: FDA-Public Use
  Company Number: US-GLAXOSMITHKLINE-A1036065A

PATIENT
  Age: 62 Year
  Sex: Female
  Weight: 186.8 kg

DRUGS (1)
  1. AVANDIA [Suspect]
     Indication: DIABETES MELLITUS
     Dosage: 4MG TWICE PER DAY
     Route: 048
     Dates: start: 200410, end: 200706

REACTIONS (4)
  - Cardiac failure congestive [Unknown]
  - Cardiac disorder [Unknown]
  - Myocardial infarction [Unknown]
  - Shock [Unknown]
